FAERS Safety Report 15007169 (Version 1)
Quarter: 2018Q2

REPORT INFORMATION
  Report Type: Report from Study
  Country: FR (occurrence: FR)
  Receive Date: 20180613
  Receipt Date: 20180613
  Transmission Date: 20180711
  Serious: Yes (Death, Hospitalization)
  Sender: FDA-Public Use
  Company Number: FR-PFIZER INC-2018234868

PATIENT
  Age: 68 Year
  Sex: Male

DRUGS (12)
  1. IRINOTECAN HCL [Suspect]
     Active Substance: IRINOTECAN HYDROCHLORIDE
     Dosage: 349 MG, CYCLIC
     Route: 041
     Dates: start: 20151207, end: 20151207
  2. AFLIBERCEPT [Suspect]
     Active Substance: AFLIBERCEPT
     Dosage: 312 MG, CYCLIC
     Route: 041
     Dates: start: 20151124, end: 20151124
  3. ALBUMIN [Concomitant]
     Active Substance: ALBUMIN HUMAN
     Dosage: UNK
     Dates: start: 20151216, end: 20151218
  4. FLUOROURACIL. [Suspect]
     Active Substance: FLUOROURACIL
     Dosage: 3492 MG, CYCLIC
     Route: 041
     Dates: start: 20151207
  5. LOPERAMIDE [Concomitant]
     Active Substance: LOPERAMIDE
     Dosage: UNK
     Dates: start: 20151201, end: 20151204
  6. FLECAINE [Concomitant]
     Active Substance: FLECAINIDE
     Dosage: UNK
     Dates: start: 2014
  7. FLUOROURACIL. [Suspect]
     Active Substance: FLUOROURACIL
     Indication: COLORECTAL CANCER METASTATIC
     Dosage: 3492 MG, CYCLIC
     Route: 041
     Dates: start: 20151124
  8. CALCIUM FOLINATE [Suspect]
     Active Substance: LEUCOVORIN CALCIUM
     Dosage: 388 MG, CYCLIC
     Route: 041
     Dates: start: 20151207, end: 20151207
  9. PRAVASTATINE [Concomitant]
     Active Substance: PRAVASTATIN
     Indication: PROPHYLAXIS
     Dosage: UNK
     Dates: start: 2014
  10. IRINOTECAN HCL [Suspect]
     Active Substance: IRINOTECAN HYDROCHLORIDE
     Indication: COLORECTAL CANCER METASTATIC
     Dosage: 349 MG, CYCLIC
     Route: 041
     Dates: start: 20151124, end: 20151124
  11. CALCIUM FOLINATE [Suspect]
     Active Substance: LEUCOVORIN CALCIUM
     Indication: COLORECTAL CANCER METASTATIC
     Dosage: 388 MG, CYCLIC
     Route: 041
     Dates: start: 20151124, end: 20151124
  12. AFLIBERCEPT [Suspect]
     Active Substance: AFLIBERCEPT
     Indication: COLORECTAL CANCER METASTATIC
     Dosage: 312 MG, CYCLIC
     Route: 041
     Dates: start: 20151207, end: 20151207

REACTIONS (3)
  - Hypoalbuminaemia [Not Recovered/Not Resolved]
  - General physical health deterioration [Fatal]
  - Respiratory failure [Recovered/Resolved]

NARRATIVE: CASE EVENT DATE: 20151213
